FAERS Safety Report 25889356 (Version 2)
Quarter: 2025Q4

REPORT INFORMATION
  Report Type: Spontaneous
  Country: US (occurrence: US)
  Receive Date: 20251007
  Receipt Date: 20251029
  Transmission Date: 20260118
  Serious: No
  Sender: Kenvue
  Company Number: US-KENVUE-20250809408

PATIENT
  Sex: Male

DRUGS (3)
  1. ROGAINE [Suspect]
     Active Substance: MINOXIDIL
     Indication: Alopecia
     Dosage: TWO FOAM EACH, TWICE A DAY, USE TWO DOSES OF FOAM-ONE FOR THE FRONTAL AREA AND ONE FOR THE CROWN
     Route: 061
     Dates: start: 20250415
  2. ROGAINE [Suspect]
     Active Substance: MINOXIDIL
     Indication: Product used for unknown indication
  3. Argan hair oil [Concomitant]
     Indication: Dry skin prophylaxis
     Dosage: UNK
     Route: 061
     Dates: start: 2025

REACTIONS (5)
  - Alopecia [Recovering/Resolving]
  - Hyperhidrosis [Unknown]
  - Hair growth abnormal [Unknown]
  - Product use in unapproved indication [Unknown]
  - Therapeutic response unexpected [Unknown]

NARRATIVE: CASE EVENT DATE: 20250101
